FAERS Safety Report 19846409 (Version 1)
Quarter: 2021Q3

REPORT INFORMATION
  Report Type: Spontaneous
  Country: US (occurrence: US)
  Receive Date: 20210915
  Receipt Date: 20210915
  Transmission Date: 20211014
  Serious: No
  Sender: FDA-Public Use
  Company Number: None

PATIENT
  Age: 56 Year
  Sex: Male
  Weight: 180 kg

DRUGS (1)
  1. PEMBROLIZUMAB (PEMBROLIZUMAB 50MG/VIL INJ) [Suspect]
     Active Substance: PEMBROLIZUMAB
     Indication: LUNG ADENOCARCINOMA STAGE IV
     Dosage: ?          OTHER STRENGTH:50MG/VIL;?
     Dates: start: 20210404, end: 20210425

REACTIONS (4)
  - Hypersensitivity pneumonitis [None]
  - Malaise [None]
  - Pneumonia [None]
  - Dermatitis [None]

NARRATIVE: CASE EVENT DATE: 20210426
